FAERS Safety Report 20507110 (Version 1)
Quarter: 2022Q1

REPORT INFORMATION
  Report Type: Spontaneous
  Country: US (occurrence: None)
  Receive Date: 20220222
  Receipt Date: 20220222
  Transmission Date: 20220423
  Serious: Yes (Death, Hospitalization)
  Sender: FDA-Public Use
  Company Number: None

PATIENT
  Age: 69 Year
  Sex: Male
  Weight: 90 kg

DRUGS (11)
  1. REMICADE [Suspect]
     Active Substance: INFLIXIMAB
     Indication: Rheumatoid arthritis
     Dosage: OTHER FREQUENCY : EVERY 8 WEEKS;?
     Route: 042
     Dates: start: 20210301, end: 20211215
  2. LANTUS [Concomitant]
     Active Substance: INSULIN GLARGINE
  3. DULOXETINE [Concomitant]
     Active Substance: DULOXETINE
  4. VICTOZA [Concomitant]
     Active Substance: LIRAGLUTIDE
  5. ATORVASTATIN [Concomitant]
     Active Substance: ATORVASTATIN
  6. METFORMIN [Concomitant]
     Active Substance: METFORMIN HYDROCHLORIDE
  7. METOPROLOL TARTRATE [Concomitant]
     Active Substance: METOPROLOL TARTRATE
  8. ENALAPRIL [Concomitant]
     Active Substance: ENALAPRIL
  9. METHOTREXATE [Concomitant]
     Active Substance: METHOTREXATE
  10. FOLIC ACID [Concomitant]
     Active Substance: FOLIC ACID
  11. VITAMIN A [Concomitant]
     Active Substance: VITAMIN A

REACTIONS (4)
  - Lymphoma [None]
  - Acute respiratory failure [None]
  - Septic shock [None]
  - Product complaint [None]

NARRATIVE: CASE EVENT DATE: 20220111
